FAERS Safety Report 12495536 (Version 3)
Quarter: 2016Q4

REPORT INFORMATION
  Report Type: Spontaneous
  Country: US (occurrence: US)
  Receive Date: 20160624
  Receipt Date: 20161129
  Transmission Date: 20170207
  Serious: Yes (Hospitalization)
  Sender: FDA-Public Use
  Company Number: US-ASTRAZENECA-2014BM14622

PATIENT
  Age: 20386 Day
  Sex: Female
  Weight: 224 kg

DRUGS (14)
  1. BYDUREON [Suspect]
     Active Substance: EXENATIDE
     Indication: BLOOD INSULIN
     Route: 058
     Dates: start: 2014
  2. BYDUREON [Suspect]
     Active Substance: EXENATIDE
     Indication: TYPE 2 DIABETES MELLITUS
     Route: 058
     Dates: start: 2015, end: 201605
  3. BYDUREON [Suspect]
     Active Substance: EXENATIDE
     Indication: BLOOD INSULIN
     Route: 058
     Dates: start: 2015, end: 201605
  4. BYDUREON [Suspect]
     Active Substance: EXENATIDE
     Indication: TYPE 2 DIABETES MELLITUS
     Route: 058
     Dates: start: 2014
  5. BYDUREON [Suspect]
     Active Substance: EXENATIDE
     Indication: BLOOD GLUCOSE NORMAL
     Route: 058
     Dates: start: 2014
  6. BYDUREON [Suspect]
     Active Substance: EXENATIDE
     Indication: BLOOD GLUCOSE NORMAL
     Route: 058
     Dates: end: 20141019
  7. BYDUREON [Suspect]
     Active Substance: EXENATIDE
     Indication: BLOOD GLUCOSE NORMAL
     Route: 058
     Dates: start: 2015, end: 201605
  8. BYDUREON [Suspect]
     Active Substance: EXENATIDE
     Indication: TYPE 2 DIABETES MELLITUS
     Route: 058
     Dates: end: 20141019
  9. FAST ACTING INSULIN [Concomitant]
  10. THYROID MEDICINE [Concomitant]
     Active Substance: UNSPECIFIED INGREDIENT
     Indication: THYROID DISORDER
  11. BYDUREON [Suspect]
     Active Substance: EXENATIDE
     Indication: BLOOD INSULIN
     Route: 058
     Dates: end: 20141019
  12. LANTUS [Concomitant]
     Active Substance: INSULIN GLARGINE
     Indication: TYPE 2 DIABETES MELLITUS
  13. HUMALOG [Concomitant]
     Active Substance: INSULIN LISPRO
     Indication: TYPE 2 DIABETES MELLITUS
  14. EDEMA MEDICINE [Concomitant]
     Indication: OEDEMA

REACTIONS (6)
  - Intentional product misuse [Unknown]
  - Blood glucose increased [Unknown]
  - Hiccups [Unknown]
  - Device issue [Unknown]
  - Underdose [Unknown]
  - Atrial fibrillation [Recovering/Resolving]

NARRATIVE: CASE EVENT DATE: 20141019
